FAERS Safety Report 6067106-5 (Version None)
Quarter: 2009Q1

REPORT INFORMATION
  Report Type: 
  Country: None (occurrence: None)
  Receive Date: 20090205
  Receipt Date: 20090129
  Transmission Date: 20090719
  Serious: Yes (Other)
  Sender: FDA-Public Use
  Company Number: DE-ABBOTT-09P-062-0500639-00

PATIENT
  Sex: Male

DRUGS (11)
  1. HUMIRA [Suspect]
     Indication: ANKYLOSING SPONDYLITIS
     Route: 058
     Dates: start: 20081128
  2. CORTISONE [Concomitant]
     Indication: ANKYLOSING SPONDYLITIS
  3. EPLERENONE [Concomitant]
     Indication: CONGESTIVE CARDIOMYOPATHY
  4. DELIX PROTECT [Concomitant]
     Indication: CONGESTIVE CARDIOMYOPATHY
  5. TOREMIFEN [Concomitant]
     Indication: CONGESTIVE CARDIOMYOPATHY
  6. CONCOR [Concomitant]
     Indication: CONGESTIVE CARDIOMYOPATHY
  7. PANTOZOL [Concomitant]
     Indication: PROPHYLAXIS AGAINST GASTROINTESTINAL ULCER
  8. MORPHINE SO4 2- [Concomitant]
     Indication: PAIN
  9. METHOTREXATE [Concomitant]
     Indication: ANKYLOSING SPONDYLITIS
  10. FOLSAN [Concomitant]
     Indication: VITAMIN SUPPLEMENTATION
  11. NULYTELY [Concomitant]
     Indication: CONSTIPATION

REACTIONS (1)
  - CONGESTIVE CARDIOMYOPATHY [None]
